FAERS Safety Report 20736610 (Version 1)
Quarter: 2022Q2

REPORT INFORMATION
  Report Type: Spontaneous
  Country: US (occurrence: US)
  Receive Date: 20220421
  Receipt Date: 20220421
  Transmission Date: 20220720
  Serious: No
  Sender: FDA-Public Use
  Company Number: US-PFIZER INC-202200308327

PATIENT
  Age: 58 Year
  Sex: Female
  Weight: 53.061 kg

DRUGS (1)
  1. IBRANCE [Suspect]
     Active Substance: PALBOCICLIB
     Dosage: UNK

REACTIONS (6)
  - Bowel movement irregularity [Unknown]
  - Dyspepsia [Unknown]
  - Insomnia [Unknown]
  - Weight decreased [Unknown]
  - Parosmia [Unknown]
  - Asthenia [Unknown]
